FAERS Safety Report 6884672-8 (Version None)
Quarter: 2010Q3

REPORT INFORMATION
  Report Type: 
  Country: None (occurrence: None)
  Receive Date: 20100727
  Receipt Date: 20100719
  Transmission Date: 20110219
  Serious: Yes (Other)
  Sender: FDA-Public Use
  Company Number: DSA_42828_2010

PATIENT
  Sex: Male

DRUGS (9)
  1. XENAZINE [Suspect]
     Indication: HUNTINGTON'S DISEASE
     Dosage: 12.5 MG, BID, ORAL (12.5 MG, QD, ORAL)
     Route: 048
     Dates: start: 20100201, end: 20100301
  2. XENAZINE [Suspect]
     Indication: HUNTINGTON'S DISEASE
     Dosage: 12.5 MG, BID, ORAL (12.5 MG, QD, ORAL)
     Route: 048
     Dates: start: 20100309, end: 20100701
  3. BUSPAR [Concomitant]
  4. CARDURA [Concomitant]
  5. TYLENOL PM [Concomitant]
  6. PROSCAR [Concomitant]
  7. NASONEX [Concomitant]
  8. RISPERDAL [Concomitant]
  9. ZOLOFT [Concomitant]

REACTIONS (5)
  - AGGRESSION [None]
  - BELLIGERENCE [None]
  - CONFUSIONAL STATE [None]
  - PSYCHOTIC DISORDER [None]
  - SUICIDAL IDEATION [None]
